FAERS Safety Report 20440278 (Version 1)
Quarter: 2022Q1

REPORT INFORMATION
  Report Type: Spontaneous
  Country: US (occurrence: None)
  Receive Date: 20220205
  Receipt Date: 20220205
  Transmission Date: 20220424
  Serious: Yes (Disabling, Other)
  Sender: FDA-Public Use
  Company Number: None

PATIENT
  Age: 55 Year
  Sex: Female
  Weight: 49.5 kg

DRUGS (23)
  1. AMBIEN [Suspect]
     Active Substance: ZOLPIDEM TARTRATE
     Indication: Insomnia
     Dosage: OTHER QUANTITY : 1 TABLET(S);?FREQUENCY : AT BEDTIME;?
     Route: 048
     Dates: start: 20190212, end: 20191207
  2. RISEDRONATE SODIUM [Concomitant]
  3. ZOLMITRIPTAN [Concomitant]
     Active Substance: ZOLMITRIPTAN
  4. PROPRANOLOL [Concomitant]
     Active Substance: PROPRANOLOL HYDROCHLORIDE
  5. ALBUTEROL [Concomitant]
     Active Substance: ALBUTEROL
  6. AMBIEN [Concomitant]
     Active Substance: ZOLPIDEM TARTRATE
  7. TOPAMAX [Concomitant]
     Active Substance: TOPIRAMATE
  8. FLOVENT [Concomitant]
     Active Substance: FLUTICASONE PROPIONATE
  9. NASACORT [Concomitant]
     Active Substance: TRIAMCINOLONE ACETONIDE
  10. VITRON-C (IRON + VITAMIN C) [Concomitant]
  11. VITAMIN D [Concomitant]
     Active Substance: VITAMIN D NOS
  12. VITAMIN B COMPLEX [Concomitant]
     Active Substance: CYANOCOBALAMIN\DEXPANTHENOL\NIACINAMIDE\PYRIDOXINE HYDROCHLORIDE\RIBOFLAVIN 5^-PHOSPHATE SODIUM\THIA
  13. VITAMIN B-2 (RIBOFLAVIN) [Concomitant]
  14. MAGNESIUM [Concomitant]
  15. MELATONIN [Concomitant]
     Active Substance: MELATONIN
  16. TYLENOL [Concomitant]
  17. EXCEDRIN EXTRA STRENGTH [Concomitant]
     Active Substance: ACETAMINOPHEN\ASPIRIN\CAFFEINE
  18. PEPCID [Concomitant]
     Active Substance: FAMOTIDINE
  19. PRILOSEC [Concomitant]
     Active Substance: OMEPRAZOLE MAGNESIUM
  20. TUMS [Concomitant]
     Active Substance: CALCIUM CARBONATE
  21. IMODIUM [Concomitant]
  22. CAFFEINE [Concomitant]
     Active Substance: CAFFEINE
  23. ZOLPIDEM [Suspect]
     Active Substance: ZOLPIDEM TARTRATE
     Indication: Insomnia
     Dosage: AT BEDTIME
     Dates: start: 20190212, end: 20191207

REACTIONS (18)
  - Gastroenteritis [None]
  - Migraine [None]
  - Nasopharyngitis [None]
  - Headache [None]
  - Chills [None]
  - Asthenia [None]
  - Balance disorder [None]
  - Oropharyngeal pain [None]
  - Pyrexia [None]
  - Decreased appetite [None]
  - Weight decreased [None]
  - Feeling cold [None]
  - Asthenia [None]
  - Drug dependence [None]
  - Drug dependence [None]
  - Withdrawal syndrome [None]
  - Abdominal pain [None]
  - Gait disturbance [None]

NARRATIVE: CASE EVENT DATE: 20190212
